FAERS Safety Report 6305786-7 (Version None)
Quarter: 2009Q3

REPORT INFORMATION
  Report Type: 
  Country: None (occurrence: None)
  Receive Date: 20090812
  Receipt Date: 20070817
  Transmission Date: 20100115
  Serious: Yes (Hospitalization, Other)
  Sender: FDA-Public Use
  Company Number: US-ASTRAZENECA-2006UW24184

PATIENT
  Age: 15943 Day
  Sex: Female
  Weight: 104 kg

DRUGS (30)
  1. SEROQUEL [Suspect]
     Indication: SCHIZOPHRENIA
     Dosage: 25MG-400MG
     Route: 048
     Dates: start: 20050210
  2. SEROQUEL [Suspect]
     Indication: BIPOLAR DISORDER
     Dosage: 25MG-400MG
     Route: 048
     Dates: start: 20050210
  3. SEROQUEL [Suspect]
     Indication: DEPRESSION
     Dosage: 25MG-400MG
     Route: 048
     Dates: start: 20050210
  4. SEROQUEL [Suspect]
     Route: 048
  5. SEROQUEL [Suspect]
     Route: 048
  6. SEROQUEL [Suspect]
     Route: 048
  7. ZYPREXA [Suspect]
     Indication: BIPOLAR DISORDER
     Dates: start: 20020101
  8. ZYPREXA [Suspect]
     Dosage: 10MG-20MG
     Route: 048
     Dates: start: 20020531
  9. ABILIFY [Concomitant]
     Dates: start: 20040101
  10. CLOZARIL [Concomitant]
     Dates: start: 20040101, end: 20060101
  11. HALDOL [Concomitant]
     Dates: start: 19920101, end: 19930101
  12. NAVANE [Concomitant]
  13. RISPERDAL [Concomitant]
     Dates: start: 19940101
  14. THORAZINE [Concomitant]
     Dates: start: 19900101
  15. GLUCOTROL [Concomitant]
     Dosage: 5MG-10MG
     Route: 048
     Dates: start: 20020531
  16. LOTREL [Concomitant]
     Dosage: 5/10MG-10/20MG
     Route: 048
     Dates: start: 20030221
  17. TOPROL-XL [Concomitant]
     Dosage: 50-DAILY
     Route: 048
     Dates: start: 20030221
  18. WELLBUTRIN [Concomitant]
     Dosage: 150MG TWO TIMES A DAY, 300MG DAILY
     Dates: start: 20030221
  19. GLYBURIDE [Concomitant]
     Dosage: 2.5MG-20MG
     Dates: start: 20030221
  20. IMITREX [Concomitant]
     Indication: MIGRAINE
     Dosage: 10 MG AS NECESSARY
  21. PHENERGAN [Concomitant]
     Dosage: 25 MG IF REQUIRED
  22. NEXIUM [Concomitant]
     Dosage: 40MG-80 MG
     Dates: start: 20050417
  23. LANTUS [Concomitant]
     Dosage: 15 UNITS-20 UNITS
     Dates: start: 20050301
  24. LOPRESSOR [Concomitant]
     Dosage: 100-TWO TIMES A DAY
     Dates: start: 20060217
  25. LAMICTAL [Concomitant]
     Dates: start: 20050417
  26. LYRICA [Concomitant]
     Dates: start: 20050417
  27. TOPAMAX [Concomitant]
     Dosage: 25-AT NIGHT
  28. LUNESTA [Concomitant]
     Dates: start: 20050417
  29. RELPAX [Concomitant]
     Indication: MIGRAINE
     Dosage: 40 MG AS NECESSARY
     Dates: start: 20050416
  30. PERCOCET [Concomitant]
     Indication: MIGRAINE

REACTIONS (5)
  - DIABETES MELLITUS [None]
  - DIABETES MELLITUS INADEQUATE CONTROL [None]
  - DIABETIC GASTROPATHY [None]
  - DIABETIC NEUROPATHY [None]
  - HYPOGLYCAEMIA [None]
